FAERS Safety Report 14167326 (Version 1)
Quarter: 2017Q4

REPORT INFORMATION
  Report Type: Spontaneous
  Country: JP (occurrence: JP)
  Receive Date: 20171107
  Receipt Date: 20171107
  Transmission Date: 20180321
  Serious: Yes (Other)
  Sender: FDA-Public Use
  Company Number: PHJP2017JP029909

PATIENT
  Age: 91 Year
  Sex: Male

DRUGS (5)
  1. EXELON PATCH [Suspect]
     Active Substance: RIVASTIGMINE
     Dosage: 18 MG, PATCH 10 (CM2), QD
     Route: 062
     Dates: start: 20170825, end: 20170903
  2. EXELON PATCH [Suspect]
     Active Substance: RIVASTIGMINE
     Dosage: 4.5 MG, PATCH 10 (CM2), QD
     Route: 062
     Dates: start: 20170918, end: 20170922
  3. EXELON PATCH [Suspect]
     Active Substance: RIVASTIGMINE
     Indication: DEMENTIA ALZHEIMER^S TYPE
     Dosage: 4.5 MG, PATCH 2.5 (CM2), QD
     Route: 062
  4. EXELON PATCH [Suspect]
     Active Substance: RIVASTIGMINE
     Dosage: 9 MG, PATCH 5 (CM2), QD
     Route: 062
     Dates: start: 20170526, end: 20170728
  5. EXELON PATCH [Suspect]
     Active Substance: RIVASTIGMINE
     Dosage: 13.5 MG, PATCH 7.5 (CM2), QD
     Route: 062
     Dates: start: 20170729, end: 20170824

REACTIONS (3)
  - Erythema [Unknown]
  - Toxic skin eruption [Recovered/Resolved]
  - Eczema [Unknown]

NARRATIVE: CASE EVENT DATE: 20170627
